FAERS Safety Report 13448344 (Version 1)
Quarter: 2017Q2

REPORT INFORMATION
  Report Type: Spontaneous
  Country: US (occurrence: US)
  Receive Date: 20170417
  Receipt Date: 20170417
  Transmission Date: 20170830
  Serious: Yes (Death, Hospitalization)
  Sender: FDA-Public Use
  Company Number: US-JNJFOC-20170414320

PATIENT
  Age: 72 Year
  Sex: Female

DRUGS (2)
  1. METFORMIN [Suspect]
     Active Substance: METFORMIN HYDROCHLORIDE
     Indication: PRODUCT USED FOR UNKNOWN INDICATION
     Route: 048
  2. INVOKANA [Suspect]
     Active Substance: CANAGLIFLOZIN
     Indication: PRODUCT USED FOR UNKNOWN INDICATION
     Route: 048

REACTIONS (7)
  - Encephalopathy [Unknown]
  - Diabetic ketoacidosis [Unknown]
  - Disseminated intravascular coagulation [Fatal]
  - Lactic acidosis [Fatal]
  - Cardiogenic shock [Fatal]
  - Acute kidney injury [Unknown]
  - Septic shock [Unknown]

NARRATIVE: CASE EVENT DATE: 201507
